FAERS Safety Report 12936799 (Version 1)
Quarter: 2016Q4

REPORT INFORMATION
  Report Type: Spontaneous
  Country: BR (occurrence: BR)
  Receive Date: 20161114
  Receipt Date: 20161114
  Transmission Date: 20170207
  Serious: Yes (Other)
  Sender: FDA-Public Use
  Company Number: BR-BAYER-2016-212523

PATIENT
  Age: 24 Year
  Sex: Female

DRUGS (1)
  1. ACETYLSALICYLIC ACID({=100 MG) [Suspect]
     Active Substance: ASPIRIN
     Indication: PLACENTAL INSUFFICIENCY
     Dosage: UNK

REACTIONS (5)
  - Umbilical cord compression [None]
  - Exposure during pregnancy [None]
  - Off label use [None]
  - Premature labour [None]
  - Contraindicated product administered [None]
